FAERS Safety Report 9305637 (Version 1)
Quarter: 2013Q2

REPORT INFORMATION
  Report Type: Report from Study
  Country: US (occurrence: US)
  Receive Date: 20130523
  Receipt Date: 20130523
  Transmission Date: 20140414
  Serious: Yes (Death, Hospitalization)
  Sender: FDA-Public Use
  Company Number: US-BAYER-2013-007462

PATIENT
  Age: 79 Year
  Sex: Male
  Weight: 87.98 kg

DRUGS (9)
  1. STIVARGA [Suspect]
     Indication: COLON CANCER
     Dosage: 160 MG, QD
     Route: 048
     Dates: start: 20130104, end: 20130110
  2. ASA [Concomitant]
  3. FLOMAX [Concomitant]
  4. LOPID [Concomitant]
  5. LYRICA [Concomitant]
  6. MAGNESIUM [Concomitant]
  7. COMPAZINE [Concomitant]
  8. XANAX [Concomitant]
  9. ZOLOFT [Concomitant]

REACTIONS (3)
  - Asthenia [Recovered/Resolved]
  - Confusional state [Recovered/Resolved]
  - Colon cancer [Fatal]
